FAERS Safety Report 5226910-3 (Version None)
Quarter: 2007Q1

REPORT INFORMATION
  Report Type: 
  Country: None (occurrence: None)
  Receive Date: 20070130
  Receipt Date: 20070118
  Transmission Date: 20070707
  Serious: Yes (Hospitalization)
  Sender: FDA-Public Use
  Company Number: GXKR2007CZ00952

PATIENT
  Age: 49 Year
  Sex: Female

DRUGS (7)
  1. OSPAMOX (NGX)(AMOXICILLIN TRIHYDRATE) TABLET, 1000MG [Suspect]
     Indication: TRACHEOBRONCHITIS
     Dosage: 1000 MG, BID, ORAL
     Route: 048
     Dates: start: 20061027, end: 20061105
  2. ACETYLCYSTEINE [Concomitant]
  3. ALERID (CETIRIZINE HYDROCHLORIDE) [Concomitant]
  4. ASCORBIC ACID [Concomitant]
  5. ZINC (ZINC) [Concomitant]
  6. ECHINACEA (ECHINACEA ANGUSTIFOLIA) [Concomitant]
  7. TANTUM VERDE (BENZYDAMINE HYDROCHLORIDE) [Concomitant]

REACTIONS (6)
  - COUGH [None]
  - FATIGUE [None]
  - HEADACHE [None]
  - PURULENT DISCHARGE [None]
  - RASH GENERALISED [None]
  - RASH PUSTULAR [None]
